FAERS Safety Report 23360823 (Version 3)
Quarter: 2024Q1

REPORT INFORMATION
  Report Type: Spontaneous
  Country: US (occurrence: US)
  Receive Date: 20240103
  Receipt Date: 20240201
  Transmission Date: 20240409
  Serious: Yes (Other)
  Sender: FDA-Public Use
  Company Number: US-JNJFOC-20231267930

PATIENT
  Age: 68 Year
  Sex: Female

DRUGS (2)
  1. STELARA [Suspect]
     Active Substance: USTEKINUMAB
     Indication: Crohn^s disease
     Route: 040
  2. AMOXICILLIN AND CLAVULANATE POTASSIUM (14:1) [Concomitant]
     Indication: Bacterial infection
     Dosage: 875-125 (MG MILLIGRAM(S)

REACTIONS (3)
  - Crohn^s disease [Unknown]
  - Sinusitis bacterial [Recovered/Resolved]
  - Drug ineffective [Unknown]

NARRATIVE: CASE EVENT DATE: 20231201
